FAERS Safety Report 8443042-1 (Version None)
Quarter: 2012Q2

REPORT INFORMATION
  Report Type: 
  Country: None (occurrence: None)
  Receive Date: 20120615
  Receipt Date: 20120614
  Transmission Date: 20120825
  Serious: Yes (Death, Other)
  Sender: FDA-Public Use
  Company Number: PHHY2012CN049734

PATIENT
  Age: 47 Year
  Sex: Female

DRUGS (2)
  1. SULPIRIDE [Interacting]
  2. DOXEPIN [Suspect]

REACTIONS (6)
  - BRONCHOPNEUMONIA [None]
  - TOXICITY TO VARIOUS AGENTS [None]
  - DRUG INTERACTION [None]
  - THYROIDITIS CHRONIC [None]
  - INTENTIONAL OVERDOSE [None]
  - COMPLETED SUICIDE [None]
